FAERS Safety Report 7129037-9 (Version None)
Quarter: 2010Q4

REPORT INFORMATION
  Report Type: 
  Country: None (occurrence: None)
  Receive Date: 20101112
  Receipt Date: 20101104
  Transmission Date: 20110411
  Serious: Yes (Hospitalization)
  Sender: FDA-Public Use
  Company Number: CIP09002843

PATIENT
  Sex: Female

DRUGS (12)
  1. ACTONEL [Suspect]
     Indication: OSTEOPOROSIS PROPHYLAXIS
     Dosage: 35 MG ONCE WEEKLY, ORAL
     Route: 048
     Dates: start: 20021009, end: 20050717
  2. FOSAMAX [Suspect]
     Dosage: 70 MG ONCE WEEKLY, ORAL
     Route: 048
     Dates: start: 20050718, end: 20060428
  3. FOSAMAX [Suspect]
     Dosage: 70 MG ONCE WEEKLY, ORAL
     Route: 048
     Dates: start: 20061026
  4. UNITHROID (LEVOTHYROXINE SODIUM) [Concomitant]
  5. CALCIUM (CALCIUM) [Concomitant]
  6. PEPCID AC [Concomitant]
  7. NAPROXEN [Concomitant]
  8. ASACOL [Concomitant]
  9. VAGIFEM [Concomitant]
  10. ZOLOFT [Concomitant]
  11. PIROXICAM [Concomitant]
  12. CELEBREX [Concomitant]

REACTIONS (16)
  - BONE ATROPHY [None]
  - BONE DENSITY DECREASED [None]
  - BONE FRAGMENTATION [None]
  - DENTAL CARIES [None]
  - JAW DISORDER [None]
  - ODONTOGENIC CYST [None]
  - OPEN WOUND [None]
  - ORAL PAIN [None]
  - ORAL TORUS [None]
  - OSTEOMYELITIS [None]
  - OSTEONECROSIS OF JAW [None]
  - PERIODONTAL DISEASE [None]
  - PERIODONTITIS [None]
  - SENSITIVITY OF TEETH [None]
  - TOOTH DISORDER [None]
  - TOOTH FRACTURE [None]
